FAERS Safety Report 8168595-2 (Version None)
Quarter: 2012Q1

REPORT INFORMATION
  Report Type: 
  Country: None (occurrence: None)
  Receive Date: 20120222
  Receipt Date: 20120209
  Transmission Date: 20120608
  Serious: Yes (Other)
  Sender: FDA-Public Use
  Company Number: 2012MA002010

PATIENT
  Age: 68 Year
  Sex: Male

DRUGS (4)
  1. ACETYLSALICYLIC ACID/MAGNESIUM OXIDE [Concomitant]
  2. FEVERALL [Suspect]
     Indication: SKELETAL INJURY
     Dosage: 1000 MG;PO
     Route: 048
     Dates: start: 20111201
  3. LAMOTRIGINE [Suspect]
     Indication: EPILEPSY
     Dosage: 50 MG;BID;PO
     Route: 048
  4. PERSANTIN [Concomitant]

REACTIONS (2)
  - PETIT MAL EPILEPSY [None]
  - DRUG INTERACTION [None]
